FAERS Safety Report 4387989-4 (Version None)
Quarter: 2004Q2

REPORT INFORMATION
  Report Type: 
  Country: None (occurrence: None)
  Receive Date: 20040607
  Receipt Date: 20030904
  Transmission Date: 20050107
  Serious: Yes (Other)
  Sender: FDA-Public Use
  Company Number: 346366

PATIENT
  Age: 29 Year
  Sex: Female

DRUGS (2)
  1. ACCUTANE [Suspect]
     Indication: ACNE
     Dates: start: 20020315, end: 20020604
  2. ORAL CONTRACEPTIVE (ORAL CONTRACEPTIVE) [Concomitant]

REACTIONS (2)
  - DEPRESSION [None]
  - DRY SKIN [None]
